FAERS Safety Report 25990367 (Version 1)
Quarter: 2025Q4

REPORT INFORMATION
  Report Type: Report from Study
  Country: US (occurrence: None)
  Receive Date: 20251103
  Receipt Date: 20251103
  Transmission Date: 20260118
  Serious: Yes (Other)
  Sender: UCB
  Company Number: US-UCBSA-2025063992

PATIENT
  Age: 15 Year
  Weight: 39 kg

DRUGS (1)
  1. FENFLURAMINE [Suspect]
     Active Substance: FENFLURAMINE
     Indication: Severe myoclonic epilepsy of infancy
     Dosage: 6 MILLILITER, 2X/DAY (BID)

REACTIONS (7)
  - Mitral valve incompetence [Recovering/Resolving]
  - Tricuspid valve incompetence [Recovering/Resolving]
  - Left ventricular dilatation [Unknown]
  - Left ventricular dysfunction [Unknown]
  - Left atrial dilatation [Unknown]
  - Global longitudinal strain abnormal [Unknown]
  - Drug ineffective [Unknown]
